FAERS Safety Report 19380019 (Version 2)
Quarter: 2021Q2

REPORT INFORMATION
  Report Type: Other
  Country: JP (occurrence: JP)
  Receive Date: 20210607
  Receipt Date: 20210611
  Transmission Date: 20210717
  Serious: Yes (Death)
  Sender: FDA-Public Use
  Company Number: JP-ROCHE-2843980

PATIENT
  Age: 6 Year
  Sex: Female

DRUGS (2)
  1. AVASTIN [Suspect]
     Active Substance: BEVACIZUMAB
     Indication: GLIOBLASTOMA
     Route: 041
  2. TEMOZOLOMIDE. [Concomitant]
     Active Substance: TEMOZOLOMIDE

REACTIONS (2)
  - Disease progression [Fatal]
  - Drug ineffective [Unknown]
